FAERS Safety Report 7877654 (Version 5)
Quarter: 2012Q4

REPORT INFORMATION
  Report Type: Spontaneous
  Country: US (occurrence: None)
  Receive Date: 20110308
  Receipt Date: 20120822
  Transmission Date: 20130627
  Serious: Yes (Death, Hospitalization, Disabling, Other)
  Sender: FDA-Public Use
  Company Number: 2011P1004654

PATIENT
  Age: 66 Year
  Sex: Female

DRUGS (6)
  1. FENTANYL [Suspect]
     Indication: ORAL MUCOSA BLISTER
     Dosage: ;TDER 3 PATCHES; ;TDER
     Route: 062
     Dates: start: 20100803
  2. FENTANYL [Suspect]
     Indication: MOUTH PAIN
     Dosage: ;TDER 3 PATCHES; ;TDER
     Route: 062
     Dates: start: 20100803
  3. FENTANYL [Suspect]
     Indication: ORAL MUCOSA BLISTER
     Dosage: ;TDER 3 PATCHES; ;TDER
     Route: 062
     Dates: end: 20100804
  4. FENTANYL [Suspect]
     Indication: MOUTH PAIN
     Dosage: ;TDER 3 PATCHES; ;TDER
     Route: 062
     Dates: end: 20100804
  5. OXYCODONE HYDROCHLORIDE [Suspect]
  6. ZYVOX [Suspect]

REACTIONS (35)
  - Unresponsive to stimuli [None]
  - Hypoxic-ischaemic encephalopathy [None]
  - Anxiety [None]
  - Aspiration [None]
  - Cold sweat [None]
  - Acute respiratory failure [None]
  - Renal failure acute [None]
  - Rhabdomyolysis [None]
  - Accidental overdose [None]
  - Pneumonia [None]
  - Staphylococcal skin infection [None]
  - Staphylococcal bacteraemia [None]
  - Deep vein thrombosis [None]
  - Anaemia [None]
  - Hypokalaemia [None]
  - Gastrooesophageal reflux disease [None]
  - Cardio-respiratory arrest [None]
  - Brain injury [None]
  - Multiple injuries [None]
  - Incorrect dose administered by device [None]
  - Product quality issue [None]
  - Pain [None]
  - Deformity [None]
  - White blood cell count increased [None]
  - Blood glucose increased [None]
  - Asthenia [None]
  - Mobility decreased [None]
  - Tracheal stenosis [None]
  - Endotracheal intubation complication [None]
  - Respiratory distress [None]
  - Thrombocytopenia [None]
  - Atelectasis [None]
  - Malnutrition [None]
  - Pneumonia staphylococcal [None]
  - Impaired work ability [None]
